FAERS Safety Report 4856814-7 (Version None)
Quarter: 2005Q4

REPORT INFORMATION
  Report Type: 
  Country: None (occurrence: None)
  Receive Date: 20051219
  Receipt Date: 20050126
  Transmission Date: 20060501
  Serious: No
  Sender: FDA-Public Use
  Company Number: US-GLAXOSMITHKLINE-A0542376A

PATIENT
  Age: 37 Year
  Sex: Male

DRUGS (2)
  1. NICODERM CQ [Suspect]
  2. NICORETTE [Suspect]

REACTIONS (8)
  - APPLICATION SITE DERMATITIS [None]
  - APPLICATION SITE ERYTHEMA [None]
  - APPLICATION SITE IRRITATION [None]
  - APPLICATION SITE PRURITUS [None]
  - FEELING JITTERY [None]
  - HYPERHIDROSIS [None]
  - NAUSEA [None]
  - NICOTINE DEPENDENCE [None]
